FAERS Safety Report 15724649 (Version 3)
Quarter: 2021Q4

REPORT INFORMATION
  Report Type: Spontaneous
  Country: US (occurrence: US)
  Receive Date: 20181214
  Receipt Date: 20211112
  Transmission Date: 20220303
  Serious: Yes (Other)
  Sender: FDA-Public Use
  Company Number: PHEH2018US052821

PATIENT
  Age: 50 Year
  Sex: Male

DRUGS (1)
  1. TASIGNA [Suspect]
     Active Substance: NILOTINIB
     Indication: Chronic myeloid leukaemia
     Dosage: 2 DF, BID
     Route: 048
     Dates: end: 20180131

REACTIONS (30)
  - Cardiovascular disorder [Unknown]
  - Type 2 diabetes mellitus [Unknown]
  - Myocardial infarction [Unknown]
  - Coronary artery disease [Unknown]
  - Peripheral arterial occlusive disease [Unknown]
  - Hypothyroidism [Unknown]
  - Diabetes mellitus [Unknown]
  - Peripheral venous disease [Unknown]
  - Obesity [Unknown]
  - Injury [Unknown]
  - Sleep apnoea syndrome [Unknown]
  - Hyperparathyroidism [Unknown]
  - Raynaud^s phenomenon [Unknown]
  - Hypertension [Unknown]
  - Hyperlipidaemia [Unknown]
  - Chest pain [Unknown]
  - Dyslipidaemia [Unknown]
  - Dyspnoea [Unknown]
  - Vertigo [Unknown]
  - Fatigue [Unknown]
  - Tinnitus [Unknown]
  - Oedema peripheral [Unknown]
  - Arthralgia [Unknown]
  - Myalgia [Unknown]
  - Pain in extremity [Unknown]
  - Intermittent claudication [Unknown]
  - Arteriosclerosis [Unknown]
  - Anxiety [Unknown]
  - Emotional distress [Unknown]
  - Pain [Unknown]

NARRATIVE: CASE EVENT DATE: 20131101
